FAERS Safety Report 15345128 (Version 1)
Quarter: 2018Q3

REPORT INFORMATION
  Report Type: Spontaneous
  Country: JP (occurrence: JP)
  Receive Date: 20180903
  Receipt Date: 20180903
  Transmission Date: 20181010
  Serious: Yes (Life-Threatening, Hospitalization, Other)
  Sender: FDA-Public Use
  Company Number: PHJP2018JP013653

PATIENT
  Age: 18 Year
  Sex: Female

DRUGS (2)
  1. METFORMIN [Suspect]
     Active Substance: METFORMIN HYDROCHLORIDE
     Indication: PRODUCT USED FOR UNKNOWN INDICATION
     Dosage: 16000 MG, UNK
     Route: 048
     Dates: start: 20180422
  2. EQUA TAB [Suspect]
     Active Substance: VILDAGLIPTIN
     Indication: PRODUCT USED FOR UNKNOWN INDICATION
     Dosage: 1300 MG, UNK
     Route: 048
     Dates: start: 20180422

REACTIONS (4)
  - Shock [Recovered/Resolved]
  - Disseminated intravascular coagulation [Unknown]
  - Overdose [Unknown]
  - Compartment syndrome [Unknown]

NARRATIVE: CASE EVENT DATE: 20180422
